FAERS Safety Report 25071994 (Version 3)
Quarter: 2025Q2

REPORT INFORMATION
  Report Type: Report from Study
  Country: JP (occurrence: JP)
  Receive Date: 20250313
  Receipt Date: 20250623
  Transmission Date: 20250717
  Serious: Yes (Hospitalization)
  Sender: ROCHE
  Company Number: JP-CHUGAI-2025007321

PATIENT
  Age: 75 Year
  Sex: Female

DRUGS (1)
  1. PIASKY [Suspect]
     Active Substance: CROVALIMAB-AKKZ
     Indication: Paroxysmal nocturnal haemoglobinuria
     Route: 058
     Dates: start: 20250218

REACTIONS (5)
  - Pyrexia [Recovering/Resolving]
  - Acute kidney injury [Not Recovered/Not Resolved]
  - Vasculitis [Recovering/Resolving]
  - Dehydration [Recovering/Resolving]
  - Vascular purpura [Recovered/Resolved]

NARRATIVE: CASE EVENT DATE: 20250228
